FAERS Safety Report 4513489-4 (Version None)
Quarter: 2004Q4

REPORT INFORMATION
  Report Type: 
  Country: None (occurrence: None)
  Receive Date: 20041124
  Receipt Date: 20041112
  Transmission Date: 20050328
  Serious: Yes (Other)
  Sender: FDA-Public Use
  Company Number: HQWYE754614OCT04

PATIENT
  Age: 58 Year
  Sex: Male

DRUGS (1)
  1. EFFEXOR XR [Suspect]
     Indication: DEPRESSION
     Dosage: UNKNOWN THEN INCREASED TO 150 MG DAILY
     Route: 048
     Dates: start: 20040501, end: 20040923

REACTIONS (15)
  - AGGRESSION [None]
  - ALCOHOLISM [None]
  - AMNESIA [None]
  - ANGER [None]
  - ANOREXIA [None]
  - CONDITION AGGRAVATED [None]
  - CONTUSION [None]
  - CONVULSION [None]
  - DRUG WITHDRAWAL SYNDROME [None]
  - HALLUCINATION, VISUAL [None]
  - PETIT MAL EPILEPSY [None]
  - RESTLESSNESS [None]
  - SPEECH DISORDER [None]
  - SUICIDAL IDEATION [None]
  - WEIGHT DECREASED [None]
